FAERS Safety Report 4656687-1 (Version None)
Quarter: 2005Q2

REPORT INFORMATION
  Report Type: 
  Country: None (occurrence: None)
  Receive Date: 20050331
  Receipt Date: 20040906
  Transmission Date: 20051028
  Serious: No
  Sender: FDA-Public Use
  Company Number: UK089862

PATIENT
  Age: 77 Year
  Sex: Female
  Weight: 67 kg

DRUGS (3)
  1. NEULASTA [Suspect]
     Indication: CHEMOTHERAPY
     Dosage: 6 MG, SC
     Route: 058
     Dates: start: 20040902, end: 20040902
  2. MITOXANTRONE [Concomitant]
  3. CHLORAMBUCIL [Concomitant]

REACTIONS (1)
  - PRURITUS GENERALISED [None]
